FAERS Safety Report 22347917 (Version 1)
Quarter: 2023Q2

REPORT INFORMATION
  Report Type: Spontaneous
  Country: US (occurrence: None)
  Receive Date: 20230522
  Receipt Date: 20230522
  Transmission Date: 20230722
  Serious: Yes (Other)
  Sender: FDA-Public Use
  Company Number: US-ROCHE-3351033

PATIENT
  Age: 66 Year
  Sex: Female

DRUGS (10)
  1. OCREVUS [Suspect]
     Active Substance: OCRELIZUMAB
     Indication: Relapsing-remitting multiple sclerosis
     Dosage: STATUS: ONGOING?LAST DOSE WAS IN NOV/2022
     Route: 065
     Dates: start: 2018
  2. BETASERON [Concomitant]
     Active Substance: INTERFERON BETA-1B
  3. COPAXONE [Concomitant]
     Active Substance: GLATIRAMER ACETATE
  4. ADDERALL [Concomitant]
     Active Substance: AMPHETAMINE ASPARTATE\AMPHETAMINE SULFATE\DEXTROAMPHETAMINE SACCHARATE\DEXTROAMPHETAMINE SULFATE
  5. GABAPENTIN [Concomitant]
     Active Substance: GABAPENTIN
  6. PRAVASTATIN [Concomitant]
     Active Substance: PRAVASTATIN
  7. AMLODIPINE BESYLATE [Concomitant]
     Active Substance: AMLODIPINE BESYLATE
  8. OMEPRAZOLE [Concomitant]
     Active Substance: OMEPRAZOLE
  9. LOSARTAN [Concomitant]
     Active Substance: LOSARTAN
  10. NUEDEXTA [Concomitant]
     Active Substance: DEXTROMETHORPHAN HYDROBROMIDE\QUINIDINE SULFATE

REACTIONS (4)
  - Fatigue [Recovered/Resolved]
  - Multiple sclerosis [Unknown]
  - Hypoaesthesia [Unknown]
  - Migraine [Recovering/Resolving]
